FAERS Safety Report 10046230 (Version 1)
Quarter: 2014Q1

REPORT INFORMATION
  Report Type: Spontaneous
  Country: US (occurrence: US)
  Receive Date: 20140331
  Receipt Date: 20140331
  Transmission Date: 20141002
  Serious: No
  Sender: FDA-Public Use
  Company Number: US-009507513-1403USA007565

PATIENT
  Age: 33 Year
  Sex: Female
  Weight: 63.49 kg

DRUGS (1)
  1. NUVARING [Suspect]
     Indication: CONTRACEPTION
     Dosage: 1 RING FOR 3 WEEKS FOLLOWED BY A WEEK FREE BREAK
     Route: 067
     Dates: start: 2010

REACTIONS (2)
  - Vulvovaginal mycotic infection [Recovered/Resolved]
  - Amenorrhoea [Unknown]
